FAERS Safety Report 9740823 (Version 1)
Quarter: 2013Q4

REPORT INFORMATION
  Report Type: Spontaneous
  Country: US (occurrence: US)
  Receive Date: 20131209
  Receipt Date: 20131209
  Transmission Date: 20140711
  Serious: No
  Sender: FDA-Public Use
  Company Number: US-BIOGENIDEC-2013BI099323

PATIENT
  Age: 58 Year
  Sex: Female

DRUGS (15)
  1. TECFIDERA [Suspect]
     Indication: MULTIPLE SCLEROSIS
     Route: 048
     Dates: start: 20130926, end: 20131002
  2. TECFIDERA [Suspect]
     Indication: MULTIPLE SCLEROSIS
     Route: 048
     Dates: start: 20131003
  3. VITAMIN D [Concomitant]
  4. LEVOTHYROXINE [Concomitant]
  5. PROZAC [Concomitant]
  6. METOPROLOL [Concomitant]
  7. AMANTADINE [Concomitant]
  8. PRIMIDONE [Concomitant]
  9. LISINOPRIL [Concomitant]
  10. LIPITOR [Concomitant]
  11. REMERON [Concomitant]
  12. VISTARIL [Concomitant]
  13. IPRATROPIUM [Concomitant]
  14. ASPIRIN EC [Concomitant]
  15. METFORMIN [Concomitant]

REACTIONS (1)
  - Flushing [Recovered/Resolved]
